FAERS Safety Report 4998994-9 (Version None)
Quarter: 2006Q2

REPORT INFORMATION
  Report Type: 
  Country: None (occurrence: None)
  Receive Date: 20060509
  Receipt Date: 20050907
  Transmission Date: 20061013
  Serious: Yes (Other)
  Sender: FDA-Public Use
  Company Number: 2005125826

PATIENT
  Age: 46 Year
  Sex: Male
  Weight: 84.8226 kg

DRUGS (2)
  1. BEXTRA [Suspect]
     Indication: ILL-DEFINED DISORDER
  2. NEXIUM [Concomitant]

REACTIONS (3)
  - DERMATITIS ALLERGIC [None]
  - DRUG ERUPTION [None]
  - STEVENS-JOHNSON SYNDROME [None]
